FAERS Safety Report 6907307-4 (Version None)
Quarter: 2010Q3

REPORT INFORMATION
  Report Type: 
  Country: None (occurrence: None)
  Receive Date: 20100730
  Receipt Date: 20090909
  Transmission Date: 20110219
  Serious: Yes (Hospitalization)
  Sender: FDA-Public Use
  Company Number: 006

PATIENT
  Age: 81 Year
  Sex: Male

DRUGS (2)
  1. DR. FRANK'S JOINT + MUSCLE PAIN RELIEF [Suspect]
     Indication: ARTHRALGIA
     Dosage: 4 SPRAYS AM 3 PM
  2. DR. FRANK'S HERBAL CAPSULES [Suspect]
     Dosage: 2 AM 1 PM

REACTIONS (1)
  - FALL [None]
